FAERS Safety Report 11616413 (Version 9)
Quarter: 2017Q1

REPORT INFORMATION
  Report Type: Spontaneous
  Country: US (occurrence: US)
  Receive Date: 20151009
  Receipt Date: 20170206
  Transmission Date: 20170428
  Serious: Yes (Hospitalization, Other)
  Sender: FDA-Public Use
  Company Number: US-009507513-1510USA004122

PATIENT
  Sex: Female
  Weight: 65.76 kg

DRUGS (2)
  1. NUVARING [Suspect]
     Active Substance: ETHINYL ESTRADIOL\ETONOGESTREL
     Indication: HORMONE SUPPRESSION THERAPY
  2. NUVARING [Suspect]
     Active Substance: ETHINYL ESTRADIOL\ETONOGESTREL
     Indication: CONTRACEPTION
     Dosage: UNK
     Route: 067
     Dates: start: 200609, end: 20121031

REACTIONS (13)
  - Anxiety [Unknown]
  - Deep vein thrombosis [Unknown]
  - Cervical radiculopathy [Unknown]
  - Food allergy [Unknown]
  - Seasonal allergy [Unknown]
  - Deep vein thrombosis [Recovered/Resolved]
  - Pain in extremity [Unknown]
  - Pneumonia [Unknown]
  - Plantar fasciitis [Unknown]
  - Pulmonary embolism [Recovered/Resolved]
  - Rhinitis allergic [Unknown]
  - Hilar lymphadenopathy [Unknown]
  - Feeling abnormal [Unknown]

NARRATIVE: CASE EVENT DATE: 200812
